FAERS Safety Report 8772570 (Version 2)
Quarter: 2013Q4

REPORT INFORMATION
  Report Type: Spontaneous
  Country: US (occurrence: US)
  Receive Date: 20120905
  Receipt Date: 20131101
  Transmission Date: 20140711
  Serious: No
  Sender: FDA-Public Use
  Company Number: US-009507513-1207USA012066

PATIENT
  Age: 57 Year
  Sex: Male

DRUGS (1)
  1. VICTRELIS [Suspect]
     Dosage: UNK MG, UNK
     Route: 048

REACTIONS (2)
  - Leukopenia [Unknown]
  - Thrombocytopenia [Unknown]
